FAERS Safety Report 19707602 (Version 1)
Quarter: 2021Q3

REPORT INFORMATION
  Report Type: Spontaneous
  Country: US (occurrence: US)
  Receive Date: 20210817
  Receipt Date: 20210817
  Transmission Date: 20211014
  Serious: Yes (Death)
  Sender: FDA-Public Use
  Company Number: None

PATIENT
  Age: 65 Year
  Sex: Male
  Weight: 80.7 kg

DRUGS (14)
  1. ACETAMINOPHEN 1000MG PO ONCE [Concomitant]
     Dates: start: 20210815, end: 20210815
  2. DEXTROSE 50% IN WATER 25GM IV PUSH ONCE [Concomitant]
     Dates: start: 20210815, end: 20210815
  3. SODIUM CHLORIDE 0.9% 500ML IV OVER 30MINS [Concomitant]
     Dates: start: 20210816, end: 20210816
  4. IMDEVIMAB. [Suspect]
     Active Substance: IMDEVIMAB
     Indication: COVID-19 TREATMENT
     Dosage: ?          OTHER FREQUENCY:ONCE;?
     Route: 042
     Dates: start: 20210816, end: 20210816
  5. GABAPENTIN 100MG PO ONCE [Concomitant]
     Dates: start: 20210816, end: 20210816
  6. INSULIN REGULAR 5UNIT IV ONCE [Concomitant]
     Dates: start: 20210815, end: 20210815
  7. ONDANSETRON 4MG IV PUSH ONCE [Concomitant]
     Dates: start: 20210816, end: 20210816
  8. SODIUM POLYSTYRENE SULFONATE 30GM PO ONCE [Concomitant]
     Dates: start: 20210815, end: 20210815
  9. PRAVASTATIN 40MG PO ONCE [Concomitant]
     Dates: start: 20210816, end: 20210816
  10. SILDENAFIL 20MG PO DAILY [Concomitant]
     Dates: start: 20210816, end: 20210816
  11. TACROLIMUS 2MG PO ONCE [Concomitant]
     Dates: start: 20210816, end: 20210816
  12. CEFTRIAXONE 1GM IV ONCE [Concomitant]
     Dates: start: 20210815, end: 20210815
  13. MYCOPHENOLATE MOFETIL 250MG PO ONCE [Concomitant]
     Dates: start: 20210816, end: 20210816
  14. CASIRIVIMAB. [Suspect]
     Active Substance: CASIRIVIMAB
     Indication: COVID-19 TREATMENT
     Dosage: ?          OTHER FREQUENCY:ONCE;?
     Route: 042
     Dates: start: 20210816, end: 20210816

REACTIONS (3)
  - Pulse absent [None]
  - Ventricular fibrillation [None]
  - Unresponsive to stimuli [None]

NARRATIVE: CASE EVENT DATE: 20210816
